FAERS Safety Report 8835333 (Version 1)
Quarter: 2012Q4

REPORT INFORMATION
  Report Type: 
  Country: US (occurrence: US)
  Receive Date: 20121011
  Receipt Date: 20121011
  Transmission Date: 20130627
  Serious: Yes (Death)
  Sender: FDA-Public Use
  Company Number: US-ROCHE-1122362

PATIENT
  Sex: Female

DRUGS (2)
  1. NUTROPIN [Suspect]
     Indication: RENAL FAILURE CHRONIC
  2. NUTROPIN [Suspect]
     Indication: AZOTAEMIA

REACTIONS (1)
  - Death [Fatal]
